FAERS Safety Report 19257963 (Version 1)
Quarter: 2021Q2

REPORT INFORMATION
  Report Type: Report from Study
  Country: US (occurrence: US)
  Receive Date: 20210514
  Receipt Date: 20210514
  Transmission Date: 20210717
  Serious: Yes (Other)
  Sender: FDA-Public Use
  Company Number: US-EMD SERONO-9218278

PATIENT
  Sex: Female

DRUGS (2)
  1. REBIF [Suspect]
     Active Substance: INTERFERON BETA-1A
     Route: 058
     Dates: start: 20200310
  2. REBIF [Suspect]
     Active Substance: INTERFERON BETA-1A
     Indication: MULTIPLE SCLEROSIS
     Route: 058
     Dates: start: 20140505, end: 20200106

REACTIONS (6)
  - Rash [Not Recovered/Not Resolved]
  - Staphylococcal infection [Unknown]
  - Scar [Unknown]
  - Influenza like illness [Unknown]
  - Pain in extremity [Unknown]
  - Skin lesion [Recovering/Resolving]
